FAERS Safety Report 5309215-1 (Version None)
Quarter: 2007Q2

REPORT INFORMATION
  Report Type: 
  Country: None (occurrence: None)
  Receive Date: 20070423
  Receipt Date: 20070412
  Transmission Date: 20071010
  Serious: Yes (Hospitalization, Other)
  Sender: FDA-Public Use
  Company Number: 100#08#2007-01140

PATIENT
  Age: 7 Week
  Sex: Female

DRUGS (6)
  1. AZITHROMYCIN [Suspect]
     Indication: BORDETELLA INFECTION
     Dosage: 10 MG/KG ONCE DAILY
  2. LANSOPRAZOLE [Concomitant]
  3. BETHANECHOL (BETHANECHOL) [Concomitant]
  4. IRON (IRON) [Concomitant]
  5. AMPICILLIN [Concomitant]
  6. CEFOTAXIME SODIUM [Concomitant]

REACTIONS (5)
  - CAESAREAN SECTION [None]
  - GASTROOESOPHAGEAL REFLUX DISEASE [None]
  - PREMATURE BABY [None]
  - PYLORIC STENOSIS [None]
  - SMALL FOR DATES BABY [None]
